APPROVED DRUG PRODUCT: AMLODIPINE BESYLATE AND ATORVASTATIN CALCIUM
Active Ingredient: AMLODIPINE BESYLATE; ATORVASTATIN CALCIUM
Strength: EQ 2.5MG BASE;EQ 40MG BASE
Dosage Form/Route: TABLET;ORAL
Application: A200465 | Product #003
Applicant: MYLAN PHARMACEUTICALS INC
Approved: Nov 29, 2013 | RLD: No | RS: No | Type: DISCN